FAERS Safety Report 4949460-8 (Version None)
Quarter: 2006Q1

REPORT INFORMATION
  Report Type: 
  Country: None (occurrence: None)
  Receive Date: 20060321
  Receipt Date: 20060217
  Transmission Date: 20060701
  Serious: Yes (Hospitalization)
  Sender: FDA-Public Use
  Company Number: JP-ROCHE-437526

PATIENT
  Age: 5 Year
  Sex: Female
  Weight: 18 kg

DRUGS (5)
  1. TAMIFLU [Suspect]
     Route: 048
     Dates: start: 20060214, end: 20060214
  2. TAMIFLU [Suspect]
     Route: 048
     Dates: start: 20060215, end: 20060215
  3. TELGIN G [Concomitant]
     Route: 048
     Dates: start: 20060214, end: 20060215
  4. ASVERIN [Concomitant]
     Route: 048
     Dates: start: 20060214, end: 20060215
  5. MUCODYNE [Concomitant]
     Route: 048
     Dates: start: 20060214, end: 20060215

REACTIONS (3)
  - EPISTAXIS [None]
  - SCAB [None]
  - UPPER GASTROINTESTINAL HAEMORRHAGE [None]
